FAERS Safety Report 10196473 (Version 3)
Quarter: 2014Q2

REPORT INFORMATION
  Report Type: Report from Study
  Country: US (occurrence: US)
  Receive Date: 20140527
  Receipt Date: 20140612
  Transmission Date: 20141212
  Serious: Yes (Hospitalization, Other)
  Sender: FDA-Public Use
  Company Number: US-BAYER-2014-066323

PATIENT
  Age: 85 Year
  Sex: Female

DRUGS (7)
  1. RIOCIGUAT (GUANYLATE CYCLASE STIMULATOR) [Suspect]
     Indication: PULMONARY ARTERIAL HYPERTENSION
     Dosage: 1 MG, TID
     Route: 048
     Dates: start: 20140328
  2. RIOCIGUAT (GUANYLATE CYCLASE STIMULATOR) [Suspect]
     Indication: PULMONARY ARTERIAL HYPERTENSION
     Dosage: 1.5 MG, TID
     Route: 048
     Dates: start: 20140331
  3. RIOCIGUAT (GUANYLATE CYCLASE STIMULATOR) [Suspect]
     Indication: PULMONARY ARTERIAL HYPERTENSION
     Dosage: 1.5 MG, TID
     Route: 048
  4. LETAIRIS [Concomitant]
     Dosage: 10 MG, QD
     Dates: start: 20130205
  5. ATENOLOL [Concomitant]
  6. LANOXIN [Concomitant]
  7. WARFARIN [Concomitant]
     Indication: BACK PAIN

REACTIONS (14)
  - Headache [None]
  - Diastolic hypotension [None]
  - Heart rate decreased [None]
  - Dizziness [None]
  - Anaemia [None]
  - Gastrointestinal haemorrhage [None]
  - Renal failure [None]
  - Toxicity to various agents [None]
  - Hyperkalaemia [None]
  - Weight increased [None]
  - International normalised ratio decreased [None]
  - Dizziness [None]
  - Back pain [None]
  - Gastric ulcer haemorrhage [None]
